FAERS Safety Report 8179671-2 (Version None)
Quarter: 2012Q1

REPORT INFORMATION
  Report Type: 
  Country: None (occurrence: None)
  Receive Date: 20120229
  Receipt Date: 20120217
  Transmission Date: 20120608
  Serious: Yes (Hospitalization, Other)
  Sender: FDA-Public Use
  Company Number: 2012MA002210

PATIENT
  Sex: Male
  Weight: 74.8435 kg

DRUGS (18)
  1. LOVASTATIN [Concomitant]
  2. CILOSTAZOL [Concomitant]
  3. CORDARONE [Concomitant]
  4. NOVOLOG [Concomitant]
  5. ASPIRIN [Concomitant]
  6. LOPRESSOR [Concomitant]
  7. LORTAB [Concomitant]
  8. PROTONIX [Concomitant]
  9. LISINOPRIL [Concomitant]
  10. NOVOLIN 70/30 [Concomitant]
  11. TOPROL-XL [Concomitant]
  12. DIGOXIN [Suspect]
     Indication: PRODUCT USED FOR UNKNOWN INDICATION
     Dosage: 125 MCG, PO
     Route: 048
     Dates: start: 20060301, end: 20100303
  13. COUMADIN [Concomitant]
  14. CYMBALTA [Concomitant]
  15. HEPARIN [Concomitant]
  16. PLAVIX [Concomitant]
  17. RANEXA [Concomitant]
  18. XANAX [Concomitant]

REACTIONS (31)
  - CARDIAC DISORDER [None]
  - DIABETIC NEUROPATHY [None]
  - INGUINAL HERNIA [None]
  - PERIPHERAL VASCULAR DISORDER [None]
  - COSTOCHONDRITIS [None]
  - GASTROOESOPHAGEAL REFLUX DISEASE [None]
  - PNEUMONIA [None]
  - ANGINA PECTORIS [None]
  - SINUS BRADYCARDIA [None]
  - TYPE 1 DIABETES MELLITUS [None]
  - HYPERTENSION [None]
  - DEEP VEIN THROMBOSIS [None]
  - CORONARY ARTERY DISEASE [None]
  - ANGINA UNSTABLE [None]
  - CARDIAC FAILURE CONGESTIVE [None]
  - ANXIETY [None]
  - PULMONARY EMBOLISM [None]
  - ECONOMIC PROBLEM [None]
  - OEDEMA PERIPHERAL [None]
  - PULMONARY OEDEMA [None]
  - ATELECTASIS [None]
  - CARDIOMEGALY [None]
  - INJURY [None]
  - CHEST PAIN [None]
  - DYSPNOEA [None]
  - PAIN IN EXTREMITY [None]
  - ABDOMINAL PAIN [None]
  - LEFT VENTRICULAR DYSFUNCTION [None]
  - HIATUS HERNIA [None]
  - LUMBAR SPINAL STENOSIS [None]
  - HEPATIC STEATOSIS [None]
